FAERS Safety Report 23565334 (Version 6)
Quarter: 2025Q3

REPORT INFORMATION
  Report Type: Report from Study
  Country: ZA (occurrence: ZA)
  Receive Date: 20240226
  Receipt Date: 20250821
  Transmission Date: 20251021
  Serious: Yes (Other)
  Sender: TAKEDA
  Company Number: ZA-TAKEDA-2022TUS004149

PATIENT
  Age: 48 Year
  Sex: Male

DRUGS (4)
  1. VEDOLIZUMAB [Suspect]
     Active Substance: VEDOLIZUMAB
     Indication: Colitis ulcerative
  2. VEDOLIZUMAB [Suspect]
     Active Substance: VEDOLIZUMAB
     Dosage: 300 MILLIGRAM, Q4WEEKS
  3. SULFASALAZINE [Concomitant]
     Active Substance: SULFASALAZINE
     Indication: Arthralgia
  4. Plasmoquin [Concomitant]
     Indication: Arthralgia

REACTIONS (7)
  - Colitis ulcerative [Unknown]
  - Testis cancer [Unknown]
  - Fatigue [Recovered/Resolved]
  - Stress [Unknown]
  - Illness [Unknown]
  - Arthralgia [Unknown]
  - Inappropriate schedule of product administration [Recovered/Resolved]

NARRATIVE: CASE EVENT DATE: 20220519
